FAERS Safety Report 14101801 (Version 1)
Quarter: 2017Q4

REPORT INFORMATION
  Report Type: Spontaneous
  Country: US (occurrence: US)
  Receive Date: 20171018
  Receipt Date: 20171018
  Transmission Date: 20180321
  Serious: Yes (Disabling)
  Sender: FDA-Public Use
  Company Number: None

PATIENT
  Age: 37 Year
  Sex: Male
  Weight: 99 kg

DRUGS (4)
  1. ZINC. [Concomitant]
     Active Substance: ZINC
  2. MAGNESIUM [Concomitant]
     Active Substance: MAGNESIUM
  3. FLUTICASONE PROPIONATE NASAL SPRAY, USP 50MCG [Suspect]
     Active Substance: FLUTICASONE PROPIONATE
     Indication: SINUSITIS
     Dosage: ?          QUANTITY:120 SPRAY(S);?
     Route: 055
     Dates: start: 20170522, end: 20170528
  4. ADDERALL XR [Concomitant]
     Active Substance: AMPHETAMINE ASPARTATE\AMPHETAMINE SULFATE\DEXTROAMPHETAMINE SACCHARATE\DEXTROAMPHETAMINE SULFATE

REACTIONS (2)
  - Anosmia [None]
  - Ageusia [None]

NARRATIVE: CASE EVENT DATE: 20170530
